FAERS Safety Report 9420094 (Version 4)
Quarter: 2013Q4

REPORT INFORMATION
  Report Type: Spontaneous
  Country: US (occurrence: US)
  Receive Date: 20130725
  Receipt Date: 20131127
  Transmission Date: 20140711
  Serious: Yes (Other)
  Sender: FDA-Public Use
  Company Number: US-PFIZER INC-2013216117

PATIENT
  Age: 46 Year
  Sex: Female
  Weight: 59.41 kg

DRUGS (17)
  1. LYRICA [Suspect]
     Indication: FIBROMYALGIA
     Dosage: 100 MG, 2X/DAY
     Route: 048
     Dates: start: 20120626
  2. LYRICA [Suspect]
     Indication: MYALGIA
     Dosage: 200 MG, 3X/DAY
     Route: 048
     Dates: start: 201303
  3. LYRICA [Suspect]
     Indication: MYOSITIS
  4. LYRICA [Suspect]
     Indication: FIBROMYALGIA
  5. LYRICA [Suspect]
     Indication: NEURALGIA
  6. SAVELLA [Suspect]
     Indication: MYALGIA
     Dosage: 100 MG, 2X/DAY (1 TAB)
     Route: 048
  7. SAVELLA [Suspect]
     Indication: MYOSITIS
  8. RANITIDINE HYDROCHLORIDE [Concomitant]
     Dosage: 300 MG, AS DIRECTED
  9. DOXEPIN HYDROCHLORIDE [Concomitant]
     Dosage: 50 MG, 1X/DAY (1 CAPSULE AT BEDTIME)
  10. HYDROXYZINE HYDROCHLORIDE [Concomitant]
     Dosage: UNK
  11. LITHIUM CARBONATE [Concomitant]
     Dosage: UNK
  12. CLARINEX [Concomitant]
     Dosage: 5 MG, 1X/DAY (1 TABLET)
  13. MIRTAZAPINE [Concomitant]
     Dosage: 15 MG, 1X/DAY (1 TABLET, BEFORE BEDTIME IN THE EVENING)
  14. CLONAZEPAM [Concomitant]
     Dosage: 1 MG, 1X/DAY (1 TABLET)
  15. HYDROCODONE-APAP [Concomitant]
     Dosage: 7.5-750 MG, AS DIRECTED
  16. QUETIAPINE FUMARATE [Concomitant]
     Dosage: 200 MG, 1X/DAY (1 TABLET AT BEDTIME)
  17. SYNTHROID [Concomitant]
     Dosage: 88 UG, 1X/DAY (1 TABLET ON AN EMPTY STOMACH IN THE MORNING)

REACTIONS (15)
  - Hypothyroidism [Recovering/Resolving]
  - Drug effect incomplete [Unknown]
  - Pain in extremity [Recovering/Resolving]
  - Arthralgia [Recovering/Resolving]
  - Pain [Unknown]
  - Hypoaesthesia [Unknown]
  - Memory impairment [Unknown]
  - Malaise [Unknown]
  - Nodal osteoarthritis [Unknown]
  - Bone erosion [Unknown]
  - Joint crepitation [Unknown]
  - Back pain [Unknown]
  - Upper respiratory tract infection [Unknown]
  - Joint stiffness [Unknown]
  - Joint warmth [Unknown]
